FAERS Safety Report 16272075 (Version 1)
Quarter: 2019Q2

REPORT INFORMATION
  Report Type: Spontaneous
  Country: GB (occurrence: GB)
  Receive Date: 20190506
  Receipt Date: 20190506
  Transmission Date: 20190711
  Serious: Yes (Other)
  Sender: FDA-Public Use
  Company Number: GB-TEVA-2019-GB-1045393

PATIENT
  Age: 12 Year
  Sex: Male
  Weight: 50.8 kg

DRUGS (2)
  1. TEVA SUMATRIPTAN [Suspect]
     Active Substance: SUMATRIPTAN
     Indication: HEADACHE
     Dosage: FOR MIGRAINE
     Route: 048
     Dates: start: 20190322, end: 20190322
  2. CO-AMOXICLAV [Concomitant]
     Active Substance: AMOXICILLIN\CLAVULANATE POTASSIUM

REACTIONS (10)
  - Head discomfort [Recovered/Resolved]
  - Pharyngeal swelling [Unknown]
  - Nausea [Recovered/Resolved]
  - Dyspnoea [Unknown]
  - Product administered to patient of inappropriate age [Unknown]
  - Paraesthesia oral [Recovered/Resolved]
  - Panic attack [Recovered/Resolved]
  - Chest discomfort [Recovered/Resolved]
  - Feeling abnormal [Recovered/Resolved]
  - Crying [Recovered/Resolved]

NARRATIVE: CASE EVENT DATE: 20190322
